FAERS Safety Report 18312491 (Version 1)
Quarter: 2020Q3

REPORT INFORMATION
  Report Type: Spontaneous
  Country: US (occurrence: US)
  Receive Date: 20200925
  Receipt Date: 20200925
  Transmission Date: 20201103
  Serious: Yes (Other)
  Sender: FDA-Public Use
  Company Number: US-ROCHE-2681602

PATIENT
  Age: 70 Year
  Sex: Female

DRUGS (3)
  1. ACTEMRA [Suspect]
     Active Substance: TOCILIZUMAB
  2. ACTEMRA [Suspect]
     Active Substance: TOCILIZUMAB
  3. ACTEMRA [Suspect]
     Active Substance: TOCILIZUMAB
     Indication: RHEUMATOID ARTHRITIS
     Dosage: ACTEMRA PFS 162 MG/0.9 ML
     Route: 058
     Dates: start: 201808

REACTIONS (2)
  - Diverticulitis [Unknown]
  - Colectomy [Unknown]

NARRATIVE: CASE EVENT DATE: 20200105
